FAERS Safety Report 25050070 (Version 1)
Quarter: 2025Q1

REPORT INFORMATION
  Report Type: Report from Study
  Country: CN (occurrence: CN)
  Receive Date: 20250307
  Receipt Date: 20250307
  Transmission Date: 20250409
  Serious: Yes (Other)
  Sender: ACCORD
  Company Number: CN-Accord-472541

PATIENT

DRUGS (4)
  1. DOCETAXEL [Suspect]
     Active Substance: DOCETAXEL
     Indication: HER2 negative breast cancer
     Dosage: 75-100 MG/M2
  2. DEXAMETHASONE [Concomitant]
     Active Substance: DEXAMETHASONE
  3. DIPHENHYDRAMINE [Concomitant]
     Active Substance: DIPHENHYDRAMINE
  4. DOCETAXEL [Suspect]
     Active Substance: DOCETAXEL
     Indication: Breast cancer metastatic
     Dosage: 75-100 MG/M2

REACTIONS (2)
  - Febrile neutropenia [Recovered/Resolved]
  - Anal abscess [Recovered/Resolved]
